FAERS Safety Report 7534104-1 (Version None)
Quarter: 2011Q2

REPORT INFORMATION
  Report Type: 
  Country: None (occurrence: None)
  Receive Date: 20110608
  Receipt Date: 20060927
  Transmission Date: 20111010
  Serious: Yes (Other)
  Sender: FDA-Public Use
  Company Number: PHEH2006US11741

PATIENT
  Sex: Female

DRUGS (3)
  1. DIOVAN [Suspect]
     Indication: HYPERTENSION
     Dosage: 160 MG, UNK
  2. LOTREL [Suspect]
     Indication: HYPERTENSION
     Dosage: 5/10MG, UNK
  3. ESIDRIX [Suspect]
     Dosage: 25 MG, UNK

REACTIONS (4)
  - DEAFNESS [None]
  - DIABETES MELLITUS [None]
  - EPILEPSY [None]
  - GLAUCOMA [None]
